FAERS Safety Report 24576682 (Version 1)
Quarter: 2024Q4

REPORT INFORMATION
  Report Type: Spontaneous
  Country: US (occurrence: None)
  Receive Date: 20241103
  Receipt Date: 20241103
  Transmission Date: 20250115
  Serious: Yes (Hospitalization, Other)
  Sender: Public
  Company Number: None

PATIENT
  Age: 46 Year
  Sex: Female

DRUGS (1)
  1. ZEPBOUND [Suspect]
     Active Substance: TIRZEPATIDE
     Indication: Weight decreased
     Dosage: OTHER FREQUENCY : WEEKLY;?
     Route: 030
     Dates: start: 20240501

REACTIONS (3)
  - Abdominal pain [None]
  - Colitis ischaemic [None]
  - Large intestinal haemorrhage [None]

NARRATIVE: CASE EVENT DATE: 20241024
